FAERS Safety Report 19630493 (Version 1)
Quarter: 2021Q3

REPORT INFORMATION
  Report Type: Spontaneous
  Country: US (occurrence: US)
  Receive Date: 20210728
  Receipt Date: 20210728
  Transmission Date: 20211014
  Serious: No
  Sender: FDA-Public Use
  Company Number: US-SA-2021SA241913

PATIENT
  Age: 74 Year
  Sex: Male

DRUGS (2)
  1. OXYMETAZOLINE HYDROCHLORIDE. [Suspect]
     Active Substance: OXYMETAZOLINE HYDROCHLORIDE
  2. NASACORT ALLERGY 24HR [Suspect]
     Active Substance: TRIAMCINOLONE ACETONIDE

REACTIONS (1)
  - Hypertension [Recovering/Resolving]
